FAERS Safety Report 4990219-3 (Version None)
Quarter: 2006Q2

REPORT INFORMATION
  Report Type: 
  Country: None (occurrence: None)
  Receive Date: 20060503
  Receipt Date: 20060413
  Transmission Date: 20061013
  Serious: Yes (Disabling, Other)
  Sender: FDA-Public Use
  Company Number: US-MERCK-0604USA02286

PATIENT
  Age: 11 Year
  Sex: Female
  Weight: 43 kg

DRUGS (2)
  1. SINGULAIR [Suspect]
     Indication: RHINITIS SEASONAL
     Route: 048
     Dates: start: 20060405, end: 20060409
  2. SINGULAIR [Suspect]
     Indication: HYPERSENSITIVITY
     Route: 048
     Dates: start: 20060405, end: 20060409

REACTIONS (1)
  - DERMATITIS ALLERGIC [None]
